FAERS Safety Report 9619706 (Version 3)
Quarter: 2014Q2

REPORT INFORMATION
  Report Type: Spontaneous
  Country: US (occurrence: US)
  Receive Date: 20131014
  Receipt Date: 20140414
  Transmission Date: 20141212
  Serious: Yes (Other)
  Sender: FDA-Public Use
  Company Number: US-B.I. PHARMACEUTICALS,INC./RIDGEFIELD-2013-BI-32357BP

PATIENT
  Age: 73 Year
  Sex: Male
  Weight: 129.27 kg

DRUGS (18)
  1. PRADAXA [Suspect]
     Indication: ATRIAL FIBRILLATION
     Route: 065
     Dates: start: 20110501, end: 20110906
  2. ASPIRIN [Concomitant]
     Route: 065
  3. ADVAIR [Concomitant]
     Route: 065
  4. ARANESP [Concomitant]
     Route: 065
  5. IMDUR [Concomitant]
     Route: 065
  6. INSULIN [Concomitant]
     Route: 065
  7. LASIX [Concomitant]
     Route: 065
  8. LEVOTHYROXINE [Concomitant]
     Route: 065
  9. LISINOPRIL [Concomitant]
     Route: 065
  10. NEURONTIN [Concomitant]
     Route: 065
  11. NITROGLYCERIN [Concomitant]
     Route: 065
  12. OMEPRAZOLE [Concomitant]
     Route: 065
  13. REQUIP [Concomitant]
     Route: 065
  14. SAW PALMETTO [Concomitant]
     Route: 065
  15. SIMVASTATIN [Concomitant]
     Route: 065
  16. TERAZOSIN [Concomitant]
     Route: 065
  17. ULORIC [Concomitant]
     Route: 065
  18. XOPENEX [Concomitant]
     Route: 065

REACTIONS (5)
  - Retinal haemorrhage [Unknown]
  - Vitreous haemorrhage [Unknown]
  - Suicidal ideation [Unknown]
  - Blindness [Unknown]
  - Depression [Unknown]
